FAERS Safety Report 14382148 (Version 8)
Quarter: 2019Q2

REPORT INFORMATION
  Report Type: Report from Study
  Country: US (occurrence: US)
  Receive Date: 20180112
  Receipt Date: 20190603
  Transmission Date: 20190711
  Serious: Yes (Hospitalization, Other)
  Sender: FDA-Public Use
  Company Number: US-ACTELION-A-NJ2018-165419

PATIENT
  Age: 65 Year
  Sex: Female
  Weight: 63.95 kg

DRUGS (7)
  1. REMODULIN [Suspect]
     Active Substance: TREPROSTINIL
     Indication: PULMONARY ARTERIAL HYPERTENSION
     Dosage: 15 NG/KG, PER MIN
     Route: 042
  2. ADCIRCA [Suspect]
     Active Substance: TADALAFIL
     Indication: PULMONARY ARTERIAL HYPERTENSION
     Dosage: 40 MG, QD
     Route: 065
  3. REMODULIN [Suspect]
     Active Substance: TREPROSTINIL
     Dosage: UNK
     Route: 058
  4. TRACLEER [Suspect]
     Active Substance: BOSENTAN
     Indication: PULMONARY ARTERIAL HYPERTENSION
     Dosage: 125 MG, BID
     Route: 048
  5. REMODULIN [Suspect]
     Active Substance: TREPROSTINIL
     Dosage: 17 NG/KG, PER MIN
     Route: 042
     Dates: start: 20190501
  6. ELIQUIS [Concomitant]
     Active Substance: APIXABAN
  7. TYVASO [Concomitant]
     Active Substance: TREPROSTINIL
     Dosage: UNK, QID

REACTIONS (19)
  - Dyspnoea [Recovered/Resolved]
  - Swelling [Recovered/Resolved]
  - Catheter site pain [Recovered/Resolved]
  - Dyspnoea exertional [Unknown]
  - Fatigue [Unknown]
  - Disease progression [Unknown]
  - Dysphonia [Unknown]
  - Oedema peripheral [Recovered/Resolved]
  - Polyuria [Unknown]
  - Pulmonary embolism [Unknown]
  - Cardiac failure [Unknown]
  - Hypotension [Unknown]
  - Eye swelling [Recovered/Resolved]
  - Pain [Unknown]
  - Oedema [Recovered/Resolved]
  - Cyanosis [Unknown]
  - Therapy change [Recovered/Resolved]
  - Nasopharyngitis [Recovering/Resolving]
  - Pulmonary hypertension [Unknown]

NARRATIVE: CASE EVENT DATE: 20171215
